FAERS Safety Report 8334224-8 (Version None)
Quarter: 2012Q2

REPORT INFORMATION
  Report Type: 
  Country: None (occurrence: None)
  Receive Date: 20120503
  Receipt Date: 20120423
  Transmission Date: 20120825
  Serious: Yes (Hospitalization)
  Sender: FDA-Public Use
  Company Number: GB-GLAXOSMITHKLINE-B0782953A

PATIENT
  Sex: Male

DRUGS (7)
  1. BETAHISTINE [Concomitant]
  2. DICLOFENAC [Concomitant]
  3. TOPICAL SKIN PREPARATION [Concomitant]
  4. ZOPICLONE [Concomitant]
  5. LEVOTHYROXINE SODIUM [Concomitant]
     Dosage: 150MCG PER DAY
  6. DUTASTERIDE/TAMSULOSIN HYDROCHLORIDE [Suspect]
     Indication: BENIGN PROSTATIC HYPERPLASIA
     Dosage: 1CAP IN THE MORNING
     Route: 048
     Dates: start: 20110503
  7. EFFEXOR [Concomitant]
     Dosage: 75MG PER DAY

REACTIONS (39)
  - VERTIGO [None]
  - DIZZINESS [None]
  - SYNCOPE [None]
  - ACUTE TONSILLITIS [None]
  - MALAISE [None]
  - ASTHENIA [None]
  - INCONTINENCE [None]
  - DEJA VU [None]
  - NAUSEA [None]
  - FATIGUE [None]
  - COUGH [None]
  - SUICIDAL IDEATION [None]
  - DYSURIA [None]
  - SOMNOLENCE [None]
  - FEELING ABNORMAL [None]
  - AGITATION [None]
  - CHEST PAIN [None]
  - URINARY TRACT DISORDER [None]
  - TERMINAL DRIBBLING [None]
  - NOCTURIA [None]
  - LOSS OF LIBIDO [None]
  - ORTHOSTATIC HYPOTENSION [None]
  - NEGLECT OF PERSONAL APPEARANCE [None]
  - MUSCLE STRAIN [None]
  - ANHEDONIA [None]
  - EMOTIONAL DISTRESS [None]
  - INSOMNIA [None]
  - COLD SWEAT [None]
  - LOSS OF CONSCIOUSNESS [None]
  - PRESYNCOPE [None]
  - CONTUSION [None]
  - ROAD TRAFFIC ACCIDENT [None]
  - GASTROOESOPHAGEAL REFLUX DISEASE [None]
  - SOCIAL AVOIDANT BEHAVIOUR [None]
  - URINE FLOW DECREASED [None]
  - SOCIAL PHOBIA [None]
  - LOSS OF EMPLOYMENT [None]
  - ECONOMIC PROBLEM [None]
  - DEPRESSED MOOD [None]
